FAERS Safety Report 8451170-X (Version None)
Quarter: 2012Q2

REPORT INFORMATION
  Report Type: 
  Country: None (occurrence: None)
  Receive Date: 20120620
  Receipt Date: 20120328
  Transmission Date: 20120825
  Serious: No
  Sender: FDA-Public Use
  Company Number: US-VERTEX PHARMACEUTICALS INC.-AE-2011-002955

PATIENT
  Sex: Female
  Weight: 81.72 kg

DRUGS (9)
  1. ZOLOFT [Concomitant]
     Indication: DEPRESSION
     Route: 048
  2. AMLODIPINE [Concomitant]
     Route: 048
  3. PREVACID [Concomitant]
     Indication: GASTROOESOPHAGEAL REFLUX DISEASE
     Route: 048
  4. BENADRYL [Concomitant]
  5. MIRTAZAPINE [Concomitant]
     Route: 048
  6. COPEGUS [Concomitant]
     Indication: HEPATITIS C
     Route: 048
     Dates: start: 20110925
  7. COZAAR [Concomitant]
     Route: 048
  8. INCIVEK [Suspect]
     Indication: HEPATITIS C
     Route: 048
     Dates: start: 20110925, end: 20111218
  9. PEGASYS [Concomitant]
     Indication: HEPATITIS C
     Route: 058
     Dates: start: 20110925

REACTIONS (19)
  - HEARING IMPAIRED [None]
  - DRY MOUTH [None]
  - INAPPROPRIATE SCHEDULE OF DRUG ADMINISTRATION [None]
  - DIZZINESS [None]
  - HOT FLUSH [None]
  - DECREASED APPETITE [None]
  - DYSPNOEA [None]
  - GAIT DISTURBANCE [None]
  - NASAL INFLAMMATION [None]
  - WEIGHT DECREASED [None]
  - DYSPHAGIA [None]
  - FATIGUE [None]
  - NAUSEA [None]
  - EXTERNAL EAR INFLAMMATION [None]
  - EYE PAIN [None]
  - RASH PRURITIC [None]
  - SWOLLEN TONGUE [None]
  - STOMATITIS [None]
  - VOMITING [None]
